FAERS Safety Report 12097484 (Version 1)
Quarter: 2016Q1

REPORT INFORMATION
  Report Type: Other
  Country: US (occurrence: US)
  Receive Date: 20160221
  Receipt Date: 20160221
  Transmission Date: 20160526
  Serious: No
  Sender: FDA-Public Use
  Company Number: US-ACORDA-ACO_111613_2015

PATIENT
  Sex: Female

DRUGS (3)
  1. REBIF [Suspect]
     Active Substance: INTERFERON BETA-1A
     Indication: PRODUCT USED FOR UNKNOWN INDICATION
     Dosage: 44 MG, TIW
     Route: 058
     Dates: start: 201204
  2. REBIF [Suspect]
     Active Substance: INTERFERON BETA-1A
     Dosage: 22 ?G, Q 3 DAYS
     Route: 058
  3. AMPYRA [Suspect]
     Active Substance: DALFAMPRIDINE
     Indication: PRODUCT USED FOR UNKNOWN INDICATION
     Dosage: 10 MG, BID
     Route: 048

REACTIONS (3)
  - Injection site reaction [Unknown]
  - Arthralgia [Unknown]
  - Gait disturbance [Unknown]
